FAERS Safety Report 7416500-6 (Version None)
Quarter: 2011Q2

REPORT INFORMATION
  Report Type: 
  Country: None (occurrence: None)
  Receive Date: 20110414
  Receipt Date: 20110405
  Transmission Date: 20111010
  Serious: Yes (Hospitalization, Other)
  Sender: FDA-Public Use
  Company Number: US-GENENTECH-313098

PATIENT
  Sex: Female

DRUGS (3)
  1. RANIBIZUMAB [Suspect]
     Indication: MACULAR DEGENERATION
     Dosage: 0.05 UNK, 1/MONTH
     Route: 031
     Dates: start: 20100421
  2. LANTUS [Concomitant]
     Indication: DIABETES MELLITUS
     Dosage: 25 U, QHS
     Route: 058
     Dates: start: 20070101, end: 20110405
  3. GABAPENTIN [Concomitant]
     Indication: NEUROPATHY PERIPHERAL
     Dosage: 100 MG, TID
     Route: 048

REACTIONS (3)
  - CHEST PAIN [None]
  - NAUSEA [None]
  - VOMITING [None]
